FAERS Safety Report 25005660 (Version 2)
Quarter: 2025Q1

REPORT INFORMATION
  Report Type: Spontaneous
  Country: US (occurrence: US)
  Receive Date: 20250224
  Receipt Date: 20250226
  Transmission Date: 20250408
  Serious: No
  Sender: PFIZER
  Company Number: US-PFIZER INC-202500040212

PATIENT
  Age: 72 Year
  Sex: Female

DRUGS (2)
  1. IBRANCE [Suspect]
     Active Substance: PALBOCICLIB
     Indication: Breast cancer
     Dates: start: 202005
  2. LETROZOLE [Concomitant]
     Active Substance: LETROZOLE
     Dates: start: 202005

REACTIONS (2)
  - Renal disorder [Unknown]
  - Blood creatinine increased [Unknown]
